FAERS Safety Report 6368379-1 (Version None)
Quarter: 2009Q3

REPORT INFORMATION
  Report Type: 
  Country: None (occurrence: None)
  Receive Date: 20090922
  Receipt Date: 20090911
  Transmission Date: 20100115
  Serious: Yes (Other)
  Sender: FDA-Public Use
  Company Number: JP-JNJFOC-20090901504

PATIENT
  Age: 62 Year
  Sex: Female

DRUGS (5)
  1. REMICADE [Suspect]
     Route: 042
     Dates: end: 20090731
  2. REMICADE [Suspect]
     Indication: RHEUMATOID ARTHRITIS
     Route: 042
     Dates: end: 20090731
  3. METHOTREXATE [Suspect]
     Indication: RHEUMATOID ARTHRITIS
     Route: 048
  4. CLINORIL [Suspect]
     Indication: DRUG USE FOR UNKNOWN INDICATION
     Route: 048
  5. PREDNISOLONE [Suspect]
     Indication: DRUG USE FOR UNKNOWN INDICATION
     Route: 048

REACTIONS (1)
  - COLITIS ISCHAEMIC [None]
